FAERS Safety Report 5121368-7 (Version None)
Quarter: 2006Q4

REPORT INFORMATION
  Report Type: 
  Country: None (occurrence: None)
  Receive Date: 20061002
  Receipt Date: 20060915
  Transmission Date: 20070319
  Serious: Yes (Hospitalization)
  Sender: FDA-Public Use
  Company Number: US_0410107365

PATIENT
  Age: 51 Year
  Sex: Female
  Weight: 110.7 kg

DRUGS (9)
  1. ZYPREXA [Suspect]
     Indication: DEPRESSION
     Dosage: SEE IMAGE
     Dates: start: 20000701, end: 20010101
  2. ZYPREXA [Suspect]
     Indication: DEPRESSION
     Dosage: SEE IMAGE
     Dates: start: 20020101, end: 20020301
  3. TRAZODONE HCL [Concomitant]
  4. KLONOPIN [Concomitant]
  5. PAXIL [Concomitant]
  6. VITAMIN B12 [Concomitant]
  7. MAGENSIUM VITAFIT (MAGNESIUM CARBONATE) [Concomitant]
  8. FOLATE SODIUM (FOLATE SODIUM) [Concomitant]
  9. RISPERDAL [Concomitant]

REACTIONS (5)
  - CEREBROVASCULAR ACCIDENT [None]
  - CEREBROVASCULAR DISORDER [None]
  - DIABETES MELLITUS NON-INSULIN-DEPENDENT [None]
  - DIABETIC ULCER [None]
  - HYPERTENSION [None]
